FAERS Safety Report 18843864 (Version 1)
Quarter: 2021Q1

REPORT INFORMATION
  Report Type: Report from Study
  Country: US (occurrence: US)
  Receive Date: 20210203
  Receipt Date: 20210203
  Transmission Date: 20210419
  Serious: No
  Sender: FDA-Public Use
  Company Number: US-EXELIXIS-CABO-20031200

PATIENT
  Age: 63 Year
  Sex: Female

DRUGS (5)
  1. ZOFRAN [Concomitant]
     Active Substance: ONDANSETRON HYDROCHLORIDE
  2. CABOMETYX [Suspect]
     Active Substance: CABOZANTINIB S-MALATE
     Indication: RENAL CANCER
     Dosage: 60 MG, QOD (QOD 2 WEEK ON AND 1 TAB DAILY)
     Route: 048
     Dates: start: 20200624
  3. CABOMETYX [Suspect]
     Active Substance: CABOZANTINIB S-MALATE
     Dosage: 60 MG, QD
     Route: 048
     Dates: start: 20200725
  4. OXYCODONE HYDROCHLORIDE. [Concomitant]
     Active Substance: OXYCODONE HYDROCHLORIDE
  5. BENZONATATE. [Concomitant]
     Active Substance: BENZONATATE

REACTIONS (7)
  - Loss of personal independence in daily activities [Unknown]
  - Eye irritation [Unknown]
  - Inappropriate schedule of product administration [Unknown]
  - Vertigo [Unknown]
  - Constipation [Unknown]
  - Blister [Unknown]
  - Fatigue [Unknown]

NARRATIVE: CASE EVENT DATE: 20200624
